FAERS Safety Report 9256777 (Version 1)
Quarter: 2013Q2

REPORT INFORMATION
  Report Type: Spontaneous
  Country: US (occurrence: None)
  Receive Date: 20130423
  Receipt Date: 20130423
  Transmission Date: 20140414
  Serious: Yes (Other)
  Sender: FDA-Public Use
  Company Number: None

PATIENT
  Age: 40 Year
  Sex: Female
  Weight: 68.95 kg

DRUGS (1)
  1. LYRICA 75 MG PFIZER [Suspect]
     Indication: NEURALGIA
     Dosage: 75 MG  AT BEDTIME  PO  ?3 NIGHTS
     Route: 048
     Dates: start: 20130403, end: 20130405

REACTIONS (7)
  - Local swelling [None]
  - Local swelling [None]
  - Gait disturbance [None]
  - Swelling face [None]
  - Onychomadesis [None]
  - Skin discolouration [None]
  - Pain [None]
